FAERS Safety Report 5328316-5 (Version None)
Quarter: 2007Q2

REPORT INFORMATION
  Report Type: 
  Country: None (occurrence: None)
  Receive Date: 20070518
  Receipt Date: 20070511
  Transmission Date: 20071010
  Serious: Yes (Hospitalization, Other)
  Sender: FDA-Public Use
  Company Number: PHNU2007PL01817

PATIENT
  Sex: Male

DRUGS (1)
  1. TEGRETOL [Suspect]
     Dosage: 1-2 TABLETS/DAY
     Route: 048
     Dates: start: 19990101, end: 20030501

REACTIONS (5)
  - ABNORMAL BEHAVIOUR [None]
  - DISABILITY [None]
  - FEELING DRUNK [None]
  - MEDICATION ERROR [None]
  - MEMORY IMPAIRMENT [None]
